FAERS Safety Report 14786907 (Version 2)
Quarter: 2018Q3

REPORT INFORMATION
  Report Type: Spontaneous
  Country: PT (occurrence: PT)
  Receive Date: 20180420
  Receipt Date: 20180801
  Transmission Date: 20181010
  Serious: Yes (Other)
  Sender: FDA-Public Use
  Company Number: PT-009507513-1804PRT006150

PATIENT
  Age: 49 Year
  Sex: Female

DRUGS (1)
  1. IMPLANON [Suspect]
     Active Substance: ETONOGESTREL
     Indication: CONTRACEPTION
     Dosage: UNK
     Route: 059
     Dates: start: 201710, end: 201803

REACTIONS (1)
  - Psoriasis [Recovered/Resolved]

NARRATIVE: CASE EVENT DATE: 201711
